FAERS Safety Report 5928704-X (Version None)
Quarter: 2008Q3

REPORT INFORMATION
  Report Type: 
  Country: None (occurrence: None)
  Receive Date: 20080923
  Receipt Date: 20080604
  Transmission Date: 20090109
  Serious: Yes (Life-Threatening, Other)
  Sender: FDA-Public Use
  Company Number: WAES 0806USA00904

PATIENT
  Age: 47 Year
  Sex: Female
  Weight: 96.6162 kg

DRUGS (3)
  1. VYTORIN [Suspect]
     Indication: HYPERTRIGLYCERIDAEMIA
     Dosage: 10-40 MG/DAILY/PO
     Route: 048
     Dates: start: 20080523, end: 20080602
  2. PRILOSEC [Concomitant]
  3. PROZAC [Concomitant]

REACTIONS (1)
  - ANAPHYLACTIC REACTION [None]
